FAERS Safety Report 8401139 (Version 3)
Quarter: 2013Q1

REPORT INFORMATION
  Report Type: Spontaneous
  Country: GB (occurrence: GB)
  Receive Date: 20120210
  Receipt Date: 20130321
  Transmission Date: 20140127
  Serious: Yes (Hospitalization)
  Sender: FDA-Public Use
  Company Number: GB-SP-2012-01650

PATIENT
  Age: 55 Year
  Sex: Male

DRUGS (1)
  1. IMMUCYST [Suspect]
     Indication: PRODUCT USED FOR UNKNOWN INDICATION
     Route: 065
     Dates: end: 20120101

REACTIONS (6)
  - Bovine tuberculosis [Unknown]
  - Injury [Unknown]
  - Pyrexia [Unknown]
  - Hiccups [Unknown]
  - Tremor [Unknown]
  - Bovine tuberculosis [Unknown]
